FAERS Safety Report 10201106 (Version 1)
Quarter: 2014Q2

REPORT INFORMATION
  Report Type: Spontaneous
  Country: DK (occurrence: CH)
  Receive Date: 20140528
  Receipt Date: 20140528
  Transmission Date: 20141212
  Serious: Yes (Death)
  Sender: FDA-Public Use
  Company Number: CH-FRI-1000067596

PATIENT
  Sex: Female

DRUGS (9)
  1. ESCITALOPRAM [Suspect]
     Dosage: 10 MG
     Route: 048
  2. ASPIRIN CARDIO [Suspect]
     Dosage: 100 MG
     Route: 048
     Dates: start: 2014, end: 20140410
  3. PANTOZOL [Concomitant]
  4. SOTALOL [Concomitant]
  5. CRESTOR [Concomitant]
  6. EUTHYROX [Concomitant]
  7. SEROQUEL [Concomitant]
  8. TRITTICO [Concomitant]
  9. ZANIDIP [Concomitant]

REACTIONS (1)
  - Thalamus haemorrhage [Fatal]
